FAERS Safety Report 4422027-6 (Version None)
Quarter: 2004Q3

REPORT INFORMATION
  Report Type: 
  Country: None (occurrence: None)
  Receive Date: 20040712
  Receipt Date: 20030507
  Transmission Date: 20050211
  Serious: No
  Sender: FDA-Public Use
  Company Number: TAP2003Q01140

PATIENT
  Age: 37 Year
  Sex: Female
  Weight: 53.978 kg

DRUGS (1)
  1. PREVACID [Suspect]
     Dosage: 30 MG, 1 IN 1 D, PER ORAL
     Route: 048
     Dates: start: 20030407, end: 20030506

REACTIONS (4)
  - APHASIA [None]
  - CEREBROVASCULAR ACCIDENT [None]
  - DIPLEGIA [None]
  - DIZZINESS [None]
